FAERS Safety Report 15010433 (Version 1)
Quarter: 2018Q2

REPORT INFORMATION
  Report Type: Spontaneous
  Country: GB (occurrence: GB)
  Receive Date: 20180614
  Receipt Date: 20180614
  Transmission Date: 20180711
  Serious: Yes (Other)
  Sender: FDA-Public Use
  Company Number: GB-TEVA-2018-GB-906407

PATIENT
  Age: 72 Year
  Sex: Female
  Weight: 79.37 kg

DRUGS (5)
  1. ATORVASTATIN [Suspect]
     Active Substance: ATORVASTATIN
     Dosage: 20 MILLIGRAM DAILY;
     Route: 065
  2. HYDROXOCOBALAMIN [Concomitant]
     Active Substance: HYDROXOCOBALAMIN
     Dosage: IMMEDIATELY. 1MG/1ML
     Route: 065
     Dates: start: 20180403
  3. CLENIL MODULITE [Concomitant]
     Active Substance: BECLOMETHASONE DIPROPIONATE
     Dosage: 400 MICROGRAM DAILY; NOTES FOR DISPENSER: THIS SHOULD LAST 3 MONTHS, PLEASE CONFIRM TAKING CORRECTLY
     Route: 065
     Dates: start: 20180406
  4. MIRABEGRON [Concomitant]
     Active Substance: MIRABEGRON
     Dosage: 50 MILLIGRAM DAILY;
     Route: 065
     Dates: start: 20180406
  5. SOLIFENACIN [Concomitant]
     Active Substance: SOLIFENACIN
     Dosage: 5 MILLIGRAM DAILY;
     Route: 065
     Dates: start: 20180312

REACTIONS (2)
  - Insomnia [Recovered/Resolved]
  - Meniere^s disease [Recovered/Resolved]

NARRATIVE: CASE EVENT DATE: 20171113
